FAERS Safety Report 7303330-9 (Version None)
Quarter: 2011Q1

REPORT INFORMATION
  Report Type: 
  Country: None (occurrence: None)
  Receive Date: 20110221
  Receipt Date: 20110215
  Transmission Date: 20110831
  Serious: Yes (Hospitalization)
  Sender: FDA-Public Use
  Company Number: US-BRISTOL-MYERS SQUIBB COMPANY-15554009

PATIENT

DRUGS (8)
  1. PULMICORT [Concomitant]
  2. ONDANSERTRON HCL [Concomitant]
     Indication: NAUSEA
     Dosage: Q8H
  3. ALBUTEROL [Concomitant]
  4. LOPERAMIDE [Concomitant]
     Indication: DIARRHOEA
     Dosage: PRN
  5. TRIMETHOPRIM + SULFAMETHOXAZOLE [Concomitant]
     Dosage: MONDAY, WEDNESDAY,FRIDAY
  6. IRINOTECAN [Suspect]
     Indication: ASTROCYTOMA
     Dosage: ACTUAL DOSE:11 MG;CYCLE:1 1ST PHASE 17DEC2010 2ND PHASE 31JAN2011
     Route: 042
     Dates: start: 20101026, end: 20110207
  7. OXYCODONE [Concomitant]
     Dosage: Q6H
  8. CETUXIMAB [Suspect]
     Indication: ASTROCYTOMA
     Dosage: ACTUAL DOSE:170 MG;CYC 1ST PHASE 17DEC2010 2ND PHASE 31JAN2011
     Route: 042
     Dates: start: 20101026, end: 20110207

REACTIONS (1)
  - DECREASED APPETITE [None]
